FAERS Safety Report 22147550 (Version 2)
Quarter: 2023Q1

REPORT INFORMATION
  Report Type: Other
  Country: EG (occurrence: EG)
  Receive Date: 20230328
  Receipt Date: 20230331
  Transmission Date: 20230418
  Serious: Yes (Other)
  Sender: FDA-Public Use
  Company Number: EG-ASTELLAS-2023US009593

PATIENT
  Age: 17 Year
  Sex: Male

DRUGS (4)
  1. PROGRAF [Suspect]
     Active Substance: TACROLIMUS
     Indication: Immunosuppression
     Dosage: 0.5 MG, UNKNOWN FREQ.
     Route: 048
     Dates: start: 202209
  2. IMURAN [Suspect]
     Active Substance: AZATHIOPRINE
     Indication: Immunosuppressant drug therapy
     Route: 048
  3. POTASSIUM [Concomitant]
     Active Substance: POTASSIUM
     Indication: Mineral supplementation
     Route: 048
  4. Solupred [Concomitant]
     Indication: Immunosuppressant drug therapy
     Dosage: 5 MG, ONCE DAILY (ONCE EVERY 24 HOURS)
     Route: 048

REACTIONS (3)
  - Electrolyte imbalance [Recovered/Resolved]
  - Diarrhoea [Recovered/Resolved]
  - Vomiting [Recovered/Resolved]

NARRATIVE: CASE EVENT DATE: 20220925
